FAERS Safety Report 17453335 (Version 1)
Quarter: 2020Q1

REPORT INFORMATION
  Report Type: Spontaneous
  Country: US (occurrence: US)
  Receive Date: 20200224
  Receipt Date: 20200224
  Transmission Date: 20200409
  Serious: No
  Sender: FDA-Public Use
  Company Number: US-PERRIGO-19US009853

PATIENT

DRUGS (1)
  1. LOPERAMIDE HYDROCHLORIDE. [Suspect]
     Active Substance: LOPERAMIDE HYDROCHLORIDE
     Indication: INFLAMMATORY BOWEL DISEASE
     Dosage: 1 MG, PRN
     Route: 048
     Dates: start: 201908

REACTIONS (1)
  - Drug effective for unapproved indication [Unknown]

NARRATIVE: CASE EVENT DATE: 201908
